FAERS Safety Report 6165098-1 (Version None)
Quarter: 2009Q2

REPORT INFORMATION
  Report Type: 
  Country: None (occurrence: None)
  Receive Date: 20090421
  Receipt Date: 20090421
  Transmission Date: 20091009
  Serious: Yes (Other)
  Sender: FDA-Public Use
  Company Number: None

PATIENT
  Age: 49 Year
  Sex: Female
  Weight: 72.5755 kg

DRUGS (2)
  1. CELEXA [Suspect]
     Indication: ANXIETY
     Dosage: 20MILLIGRAMS ONCE A DAY PO
     Route: 048
     Dates: start: 20080101, end: 20090101
  2. CELEXA [Suspect]
     Indication: DEPRESSION
     Dosage: 20MILLIGRAMS ONCE A DAY PO
     Route: 048
     Dates: start: 20080101, end: 20090101

REACTIONS (2)
  - HOT FLUSH [None]
  - SLEEP DISORDER DUE TO GENERAL MEDICAL CONDITION, INSOMNIA TYPE [None]
